FAERS Safety Report 15069862 (Version 1)
Quarter: 2018Q2

REPORT INFORMATION
  Report Type: Spontaneous
  Country: US (occurrence: US)
  Receive Date: 20180626
  Receipt Date: 20180626
  Transmission Date: 20180711
  Serious: No
  Sender: FDA-Public Use
  Company Number: US-AMGEN-USASP2014054922

PATIENT
  Sex: Female

DRUGS (1)
  1. NEULASTA [Suspect]
     Active Substance: PEGFILGRASTIM
     Indication: INFECTION PROPHYLAXIS
     Dosage: UNK
     Route: 065
     Dates: start: 201404

REACTIONS (8)
  - Injection site mass [Recovered/Resolved]
  - Pain in jaw [Recovered/Resolved]
  - Toothache [Recovered/Resolved]
  - Discomfort [Unknown]
  - Injection site warmth [Recovered/Resolved]
  - White blood cell count decreased [Unknown]
  - Urticaria [Recovered/Resolved]
  - Injection site pain [Recovered/Resolved]
